FAERS Safety Report 20878264 (Version 2)
Quarter: 2022Q2

REPORT INFORMATION
  Report Type: Spontaneous
  Country: US (occurrence: US)
  Receive Date: 20220526
  Receipt Date: 20220607
  Transmission Date: 20220721
  Serious: No
  Sender: FDA-Public Use
  Company Number: US-PFIZER INC-202200755410

PATIENT
  Age: 88 Year
  Sex: Female

DRUGS (1)
  1. LEVOFLOXACIN [Suspect]
     Active Substance: LEVOFLOXACIN
     Dosage: UNK

REACTIONS (9)
  - Paraesthesia [Unknown]
  - Swelling [Unknown]
  - Vulvovaginal burning sensation [Unknown]
  - Vulvovaginal pain [Unknown]
  - Heart rate increased [Unknown]
  - Diarrhoea [Unknown]
  - Erythema [Unknown]
  - Feeling abnormal [Unknown]
  - Drug hypersensitivity [Unknown]
